FAERS Safety Report 21245209 (Version 1)
Quarter: 2022Q3

REPORT INFORMATION
  Report Type: Spontaneous
  Country: US (occurrence: None)
  Receive Date: 20220823
  Receipt Date: 20220823
  Transmission Date: 20221027
  Serious: Yes (Hospitalization, Other)
  Sender: FDA-Public Use
  Company Number: US-Emmaus Medical, Inc.-EMM202109-000169

PATIENT
  Sex: Female

DRUGS (2)
  1. ENDARI [Suspect]
     Active Substance: GLUTAMINE
     Indication: Jugular vein embolism
     Route: 048
     Dates: start: 20200904
  2. ENDARI [Suspect]
     Active Substance: GLUTAMINE
     Indication: Jugular vein thrombosis

REACTIONS (2)
  - Sickle cell anaemia with crisis [Unknown]
  - Adverse event [Unknown]
